FAERS Safety Report 24389766 (Version 1)
Quarter: 2024Q4

REPORT INFORMATION
  Report Type: Spontaneous
  Country: US (occurrence: US)
  Receive Date: 20241003
  Receipt Date: 20241003
  Transmission Date: 20250114
  Serious: No
  Sender: ROCHE
  Company Number: US-ROCHE-10000095726

PATIENT
  Sex: Female
  Weight: 77.11 kg

DRUGS (2)
  1. AVASTIN [Suspect]
     Active Substance: BEVACIZUMAB
     Indication: Diabetic retinal oedema
     Route: 065
  2. AVASTIN [Suspect]
     Active Substance: BEVACIZUMAB
     Indication: Retinopathy

REACTIONS (4)
  - Off label use [Unknown]
  - Scleral hyperaemia [Recovered/Resolved]
  - Dry eye [Recovered/Resolved]
  - Swelling of eyelid [Recovered/Resolved]
